FAERS Safety Report 16238831 (Version 1)
Quarter: 2019Q2

REPORT INFORMATION
  Report Type: Spontaneous
  Country: US (occurrence: US)
  Receive Date: 20190425
  Receipt Date: 20190425
  Transmission Date: 20190711
  Serious: Yes (Life-Threatening, Hospitalization)
  Sender: FDA-Public Use
  Company Number: US-TEVA-2019-US-1041344

PATIENT
  Age: 12 Year
  Sex: Female
  Weight: 51 kg

DRUGS (2)
  1. MONTELUKAST [Suspect]
     Active Substance: MONTELUKAST SODIUM
     Indication: ASTHMA
     Dosage: 5 MILLIGRAM DAILY;
     Route: 048
  2. GLIPIZIDE. [Suspect]
     Active Substance: GLIPIZIDE
     Route: 048

REACTIONS (8)
  - Urinary incontinence [Recovered/Resolved]
  - Hypoglycaemia [Recovered/Resolved]
  - Hypoglycaemic seizure [Recovered/Resolved]
  - Mental status changes [Recovered/Resolved]
  - Product appearance confusion [Recovered/Resolved]
  - Hypoglycaemic unconsciousness [Recovered/Resolved]
  - Postictal paralysis [Recovered/Resolved]
  - Accidental exposure to product [Recovered/Resolved]
